FAERS Safety Report 5017466-9 (Version None)
Quarter: 2006Q2

REPORT INFORMATION
  Report Type: 
  Country: None (occurrence: None)
  Receive Date: 20060601
  Receipt Date: 20060601
  Transmission Date: 20061013
  Serious: Yes (Hospitalization, Disabling)
  Sender: FDA-Public Use
  Company Number: None

PATIENT
  Age: 59 Year
  Sex: Male

DRUGS (2)
  1. ZOCOR [Suspect]
     Indication: MIXED HYPERLIPIDAEMIA
     Dosage: 80 MG ONCE A DAY PO  MONTHS
     Route: 048
  2. LOPID [Suspect]
     Indication: MIXED HYPERLIPIDAEMIA
     Dosage: 600 MG ONCE A DAY PO  MONTHS
     Route: 048

REACTIONS (4)
  - ASTHENIA [None]
  - MYOPATHY [None]
  - RENAL FAILURE ACUTE [None]
  - RHABDOMYOLYSIS [None]
